FAERS Safety Report 25247788 (Version 1)
Quarter: 2025Q2

REPORT INFORMATION
  Report Type: Spontaneous
  Country: CN (occurrence: CN)
  Receive Date: 20250428
  Receipt Date: 20250428
  Transmission Date: 20250717
  Serious: Yes (Other)
  Sender: JOHNSON AND JOHNSON
  Company Number: CN-JNJFOC-20250431533

PATIENT
  Age: 56 Year
  Sex: Male
  Weight: 67 kg

DRUGS (3)
  1. DARZALEX [Suspect]
     Active Substance: DARATUMUMAB
     Indication: Plasma cell myeloma
     Dosage: DOSES-1 DAYS-7
     Route: 041
     Dates: start: 20250410, end: 20250410
  2. CARFILZOMIB [Suspect]
     Active Substance: CARFILZOMIB
     Indication: Plasma cell myeloma
     Dosage: DOSES-1 DAYS-14
     Route: 042
     Dates: start: 20250410, end: 20250410
  3. DEXTROSE [Concomitant]
     Active Substance: DEXTROSE MONOHYDRATE
     Indication: Vehicle solution use
     Route: 041
     Dates: start: 20250410, end: 20250410

REACTIONS (3)
  - Pancreatitis acute [Recovering/Resolving]
  - Abdominal distension [Recovering/Resolving]
  - Decreased appetite [Recovering/Resolving]

NARRATIVE: CASE EVENT DATE: 20250411
